FAERS Safety Report 8861655 (Version 1)
Quarter: 2012Q4

REPORT INFORMATION
  Report Type: Spontaneous
  Country: US (occurrence: None)
  Receive Date: 20121025
  Receipt Date: 20121025
  Transmission Date: 20130627
  Serious: No
  Sender: FDA-Public Use
  Company Number: None

PATIENT
  Age: 62 Year
  Sex: Female

DRUGS (1)
  1. PHENYTOIN [Suspect]
     Indication: SEIZURE
     Route: 048
     Dates: start: 20110331, end: 20120224

REACTIONS (4)
  - Fall [None]
  - Anticonvulsant drug level above therapeutic [None]
  - Toxicity to various agents [None]
  - Ataxia [None]
